FAERS Safety Report 5965223-9 (Version None)
Quarter: 2008Q4

REPORT INFORMATION
  Report Type: 
  Country: None (occurrence: None)
  Receive Date: 20081124
  Receipt Date: 20081124
  Transmission Date: 20090506
  Serious: No
  Sender: FDA-Public Use
  Company Number: None

PATIENT
  Age: 50 Year
  Sex: Male
  Weight: 75.2971 kg

DRUGS (1)
  1. OMEPRAZOLE DELAYED RELEASE TABS 20 MG. DEXCEL LTD. BATCH#0806047 EXP [Suspect]
     Indication: GASTROOESOPHAGEAL REFLUX DISEASE
     Dosage: 20 MG. ONCE DAILY PO
     Route: 048
     Dates: start: 20081111, end: 20081121

REACTIONS (4)
  - ASPIRATION [None]
  - DRUG EFFECT DECREASED [None]
  - GASTROOESOPHAGEAL REFLUX DISEASE [None]
  - THERAPEUTIC RESPONSE UNEXPECTED WITH DRUG SUBSTITUTION [None]
